FAERS Safety Report 18560070 (Version 2)
Quarter: 2020Q4

REPORT INFORMATION
  Report Type: Spontaneous
  Country: JP (occurrence: JP)
  Receive Date: 20201130
  Receipt Date: 20201228
  Transmission Date: 20210114
  Serious: Yes (Other)
  Sender: FDA-Public Use
  Company Number: JP-FERRINGPH-2020FE08411

PATIENT
  Age: 9 Decade
  Sex: Male

DRUGS (3)
  1. CASODEX [Concomitant]
     Active Substance: BICALUTAMIDE
  2. GONAX [Suspect]
     Active Substance: DEGARELIX
     Indication: PROSTATE CANCER
     Dosage: UNK UNK, MONTHLY
     Route: 065
  3. ERLEADA [Concomitant]
     Active Substance: APALUTAMIDE
     Route: 048

REACTIONS (1)
  - Hepatic cancer [Unknown]
